FAERS Safety Report 12602134 (Version 1)
Quarter: 2016Q3

REPORT INFORMATION
  Report Type: Spontaneous
  Country: US (occurrence: None)
  Receive Date: 20160727
  Receipt Date: 20160727
  Transmission Date: 20161109
  Serious: Yes (Hospitalization)
  Sender: FDA-Public Use
  Company Number: None

PATIENT
  Age: 70 Year
  Sex: Male
  Weight: 124.1 kg

DRUGS (2)
  1. CLOPIDOGREL [Suspect]
     Active Substance: CLOPIDOGREL BISULFATE
     Indication: PERIPHERAL VASCULAR DISORDER
     Route: 048
     Dates: start: 20100908, end: 20160701
  2. ASPIRIN. [Suspect]
     Active Substance: ASPIRIN
     Indication: PERIPHERAL VASCULAR DISORDER
     Route: 048
     Dates: start: 19970918, end: 20160701

REACTIONS (5)
  - Haematemesis [None]
  - Gastrointestinal stromal tumour [None]
  - Anaemia [None]
  - Haemodialysis complication [None]
  - Gastric ulcer haemorrhage [None]

NARRATIVE: CASE EVENT DATE: 20160707
